FAERS Safety Report 16601673 (Version 2)
Quarter: 2021Q2

REPORT INFORMATION
  Report Type: Spontaneous
  Country: US (occurrence: US)
  Receive Date: 20190719
  Receipt Date: 20210616
  Transmission Date: 20210716
  Serious: Yes (Disabling, Other)
  Sender: FDA-Public Use
  Company Number: US-TEVA-2019-US-1079203

PATIENT
  Age: 64 Year
  Sex: Female

DRUGS (8)
  1. ATENOLOL. [Concomitant]
     Active Substance: ATENOLOL
     Indication: BLOOD PRESSURE MEASUREMENT
     Route: 065
     Dates: start: 20120531
  2. VALSARTAN TEVA [Suspect]
     Active Substance: VALSARTAN
     Indication: CARDIAC FAILURE CONGESTIVE
     Route: 065
     Dates: start: 20150712, end: 20170419
  3. MONTELUKAST SOD [Concomitant]
     Active Substance: MONTELUKAST SODIUM
     Indication: ASTHMA
     Route: 065
     Dates: start: 20120821
  4. LEVALBUTEROL. [Concomitant]
     Active Substance: LEVALBUTEROL
     Dosage: 1.25 MG/3 ML SOLUTION
     Route: 065
     Dates: start: 20121207, end: 20171213
  5. VALSARTAN TEVA [Suspect]
     Active Substance: VALSARTAN
     Route: 065
     Dates: start: 20170419, end: 20180131
  6. DOXYCYCLINE HYC [Concomitant]
     Active Substance: DOXYCYCLINE HYCLATE
     Route: 065
  7. BENADRYL [Concomitant]
     Active Substance: DIPHENHYDRAMINE HYDROCHLORIDE
     Indication: HYPERSENSITIVITY
     Route: 065
     Dates: start: 2005
  8. VALSARTAN SANDOZ [Suspect]
     Active Substance: VALSARTAN
     Indication: CARDIAC FAILURE CONGESTIVE
     Route: 065
     Dates: start: 2008, end: 2018

REACTIONS (2)
  - Skin cancer [Recovered/Resolved]
  - Liver injury [Not Recovered/Not Resolved]
